FAERS Safety Report 5806979-5 (Version None)
Quarter: 2008Q3

REPORT INFORMATION
  Report Type: 
  Country: None (occurrence: None)
  Receive Date: 20080711
  Receipt Date: 20080701
  Transmission Date: 20090109
  Serious: Yes (Death, Hospitalization)
  Sender: FDA-Public Use
  Company Number: US-GENENTECH-255138

PATIENT
  Sex: Male
  Weight: 95.5 kg

DRUGS (6)
  1. EFALIZUMAB [Suspect]
     Indication: PSORIASIS
     Dosage: 1 MG, 1/WEEK
     Route: 058
     Dates: start: 20050223, end: 20070104
  2. CALCIPOTRIENE [Concomitant]
     Indication: PSORIASIS
     Dosage: UNK, PRN
     Dates: start: 20050223
  3. COAL TAR PREPARATION [Concomitant]
     Indication: PSORIASIS
     Dosage: UNK, PRN
     Dates: start: 20050223
  4. STEROIDS (UNK INGREDIENTS) [Concomitant]
     Indication: PSORIASIS
     Dosage: UNK, BID
     Dates: start: 20060615
  5. STEROID (UNK INGREDIENTS) [Concomitant]
     Indication: PSORIASIS
     Dosage: UNK, BID
     Dates: start: 20070822
  6. ENBREL [Concomitant]
     Indication: PSORIASIS
     Dosage: 50 MG, 2/WEEK
     Dates: start: 20070111

REACTIONS (1)
  - DEATH [None]
